FAERS Safety Report 10175176 (Version 1)
Quarter: 2014Q2

REPORT INFORMATION
  Report Type: Spontaneous
  Country: US (occurrence: US)
  Receive Date: 20140515
  Receipt Date: 20140515
  Transmission Date: 20141212
  Serious: No
  Sender: FDA-Public Use
  Company Number: US-VIVUS-2014V1000076

PATIENT
  Age: 40 Year
  Sex: Female
  Weight: 98.06 kg

DRUGS (9)
  1. QSYMIA 3.75MG/23MG [Suspect]
     Indication: WEIGHT DECREASED
     Route: 048
     Dates: start: 20140211
  2. SYNTHROID [Concomitant]
     Indication: THYROID DISORDER
  3. SYNTHROID [Concomitant]
  4. ATENOLOL [Concomitant]
     Indication: HEART RATE
     Route: 048
     Dates: start: 1996
  5. ATENOLOL [Concomitant]
     Indication: BLOOD PRESSURE
  6. CALCIUM [Concomitant]
     Indication: MINERAL SUPPLEMENTATION
     Route: 048
     Dates: start: 2012
  7. SPIRONOLACTONE [Concomitant]
     Indication: FLUID RETENTION
     Route: 048
     Dates: start: 2012
  8. MAGNESIUM [Concomitant]
     Indication: MINERAL SUPPLEMENTATION
     Route: 048
     Dates: start: 2012
  9. CALCITROL [Concomitant]
     Indication: MINERAL SUPPLEMENTATION
     Route: 048
     Dates: start: 2012

REACTIONS (5)
  - Feeling cold [Not Recovered/Not Resolved]
  - Tremor [Recovered/Resolved]
  - Hot flush [Not Recovered/Not Resolved]
  - Headache [Not Recovered/Not Resolved]
  - Dry mouth [Not Recovered/Not Resolved]
